FAERS Safety Report 7375733-8 (Version None)
Quarter: 2011Q1

REPORT INFORMATION
  Report Type: 
  Country: None (occurrence: None)
  Receive Date: 20110317
  Receipt Date: 20110303
  Transmission Date: 20110831
  Serious: Yes (Congenital Anomaly, Other)
  Sender: FDA-Public Use
  Company Number: 1000019227

PATIENT
  Sex: Male
  Weight: 3.85 kg

DRUGS (15)
  1. FLURAZEPAM HCL [Suspect]
     Dosage: 15 MG (15 MG, 1 IN 1 D), TRANSPLACENTAL
     Route: 064
     Dates: start: 20091214, end: 20091220
  2. FLURAZEPAM HCL [Suspect]
     Dosage: 15 MG (15 MG, 1 IN 1 D), TRANSPLACENTAL
     Route: 064
     Dates: start: 20091115, end: 20091129
  3. FLURAZEPAM HCL [Suspect]
     Dosage: 15 MG (15 MG, 1 IN 1 D), TRANSPLACENTAL
     Route: 064
     Dates: start: 20091130, end: 20091211
  4. CITALOPRAM HYDROBROMIDE [Suspect]
     Dosage: TRANSPLACENTAL
     Route: 064
     Dates: start: 20091115, end: 20091129
  5. DEANXIT DRAGEES (FLUPENTIXOL HYDROCHLORIDE, MELITRACEN HYDROCHLORIDE) [Suspect]
     Dosage: TRANSPLACENTAL
     Dates: start: 20091115, end: 20091129
  6. DEANXIT DRAGEES (FLUPENTIXOL HYDROCHLORIDE, MELITRACEN HYDROCHLORIDE) [Suspect]
     Dosage: TRANSPLACENTAL
     Dates: start: 20091214, end: 20091220
  7. DEANXIT DRAGEES (FLUPENTIXOL HYDROCHLORIDE, MELITRACEN HYDROCHLORIDE) [Suspect]
     Dosage: TRANSPLACENTAL
     Dates: start: 20091130, end: 20091211
  8. LEXOTANIL (BROMAZEPAM) [Suspect]
     Dosage: 3 MG (3 MG, 1 IN 1 D), TRANSPLACENTAL
     Route: 064
     Dates: start: 20091115, end: 20091129
  9. LEXOTANIL (BROMAZEPAM) [Suspect]
     Dosage: 3 MG (3 MG, 1 IN 1 D), TRANSPLACENTAL
     Route: 064
     Dates: start: 20091130, end: 20091211
  10. MIDAZOLAM HCL [Suspect]
     Dosage: 7.5 MG (7.5 MG, 1 IN 1 D), TRANSPLACENTAL
     Route: 064
     Dates: start: 20091115, end: 20091129
  11. MIDAZOLAM HCL [Suspect]
     Dosage: 7.5 MG (7.5 MG, 1 IN 1 D), TRANSPLACENTAL
     Route: 064
     Dates: start: 20091214, end: 20091220
  12. MIDAZOLAM HCL [Suspect]
     Dosage: 7.5 MG (7.5 MG, 1 IN 1 D), TRANSPLACENTAL
     Route: 064
     Dates: start: 20091130, end: 20091211
  13. PROPRANOLOL [Suspect]
     Dosage: 20 MG, TRANSPLACENTAL
     Route: 064
     Dates: start: 20091115, end: 20091129
  14. PROPRANOLOL [Suspect]
     Dosage: 20 MG, TRANSPLACENTAL
     Route: 064
     Dates: start: 20091130, end: 20091211
  15. PROPRANOLOL [Suspect]
     Dosage: 20 MG, TRANSPLACENTAL
     Route: 064
     Dates: start: 20091214, end: 20091220

REACTIONS (2)
  - MACROSOMIA [None]
  - MATERNAL DRUGS AFFECTING FOETUS [None]
